FAERS Safety Report 7442504-3 (Version None)
Quarter: 2011Q2

REPORT INFORMATION
  Report Type: 
  Country: None (occurrence: None)
  Receive Date: 20110428
  Receipt Date: 20110419
  Transmission Date: 20111010
  Serious: Yes (Other)
  Sender: FDA-Public Use
  Company Number: US-ROCHE-772766

PATIENT
  Sex: Male

DRUGS (2)
  1. RIBAVARIN [Suspect]
     Indication: HEPATITIS C
     Route: 065
     Dates: start: 20110121
  2. PEGASYS [Suspect]
     Indication: HEPATITIS C
     Dosage: FORM: PRE-FILLED SYRINGE
     Route: 065
     Dates: start: 20110121

REACTIONS (3)
  - HEADACHE [None]
  - PRURITUS GENERALISED [None]
  - HEPATIC CIRRHOSIS [None]
